FAERS Safety Report 25657556 (Version 8)
Quarter: 2025Q3

REPORT INFORMATION
  Report Type: Spontaneous
  Country: US (occurrence: US)
  Receive Date: 20250808
  Receipt Date: 20250924
  Transmission Date: 20251020
  Serious: Yes (Other)
  Sender: ASTELLAS
  Company Number: US-ASTELLAS-2025-AER-043106

PATIENT
  Age: 80 Year
  Sex: Female

DRUGS (7)
  1. IZERVAY [Suspect]
     Active Substance: AVACINCAPTAD PEGOL SODIUM
     Indication: Dry age-related macular degeneration
     Dosage: OU
     Route: 065
  2. IZERVAY [Suspect]
     Active Substance: AVACINCAPTAD PEGOL SODIUM
     Dosage: OU
     Route: 065
     Dates: start: 20250210, end: 20250210
  3. IZERVAY [Suspect]
     Active Substance: AVACINCAPTAD PEGOL SODIUM
     Dosage: RIGHT EYE
     Route: 065
     Dates: start: 20250828, end: 20250828
  4. IZERVAY [Suspect]
     Active Substance: AVACINCAPTAD PEGOL SODIUM
  5. IZERVAY [Suspect]
     Active Substance: AVACINCAPTAD PEGOL SODIUM
  6. IZERVAY [Suspect]
     Active Substance: AVACINCAPTAD PEGOL SODIUM
  7. BEVACIZUMAB [Concomitant]
     Active Substance: BEVACIZUMAB
     Indication: Product used for unknown indication
     Dosage: OU
     Route: 065

REACTIONS (7)
  - Endophthalmitis [Unknown]
  - Uveitis [Unknown]
  - Vitreal cells [Not Recovered/Not Resolved]
  - Eye inflammation [Recovering/Resolving]
  - Poor quality product administered [Unknown]
  - Product storage error [Unknown]
  - Product temperature excursion issue [Unknown]

NARRATIVE: CASE EVENT DATE: 20250522
